FAERS Safety Report 9543803 (Version 1)
Quarter: 2013Q2

REPORT INFORMATION
  Report Type: Spontaneous
  Country: US (occurrence: None)
  Receive Date: 20130524
  Receipt Date: 20130524
  Transmission Date: 20140414
  Serious: Yes (Hospitalization, Other)
  Sender: FDA-Public Use
  Company Number: PHEH2012US002309

PATIENT
  Age: 51 Year
  Sex: Female

DRUGS (8)
  1. GILENYA [Suspect]
     Indication: MULTIPLE SCLEROSIS
     Route: 048
     Dates: start: 20130119, end: 20130122
  2. ZANAFLEX (TIZANIDINE HYDROCHLORIDE) [Concomitant]
  3. LISINOPRIL (LISINOPRIL) [Concomitant]
  4. COUMADIN (WARFARIN SODIUM) [Concomitant]
  5. LUNESTA (ESZOPICLONE) [Concomitant]
  6. CHOLECALCIFEROL (COLECALCIFEROL) [Concomitant]
  7. FLONASE (FLUTICASONE PROPIONATE) [Concomitant]
  8. CLARITIN (LORATADINE) [Concomitant]

REACTIONS (5)
  - Atrioventricular block second degree [None]
  - Pollakiuria [None]
  - Micturition urgency [None]
  - Bradycardia [None]
  - Electrocardiogram PR prolongation [None]
